FAERS Safety Report 8327435-9 (Version None)
Quarter: 2012Q2

REPORT INFORMATION
  Report Type: 
  Country: None (occurrence: None)
  Receive Date: 20120419
  Receipt Date: 20120409
  Transmission Date: 20120825
  Serious: Yes (Other)
  Sender: FDA-Public Use
  Company Number: 2011028859

PATIENT
  Age: 63 Year
  Sex: Female
  Weight: 92.5338 kg

DRUGS (37)
  1. FOSAMAX [Concomitant]
  2. THEOPHYLLINE [Concomitant]
  3. ADVAIR DISKUS 100/50 [Concomitant]
  4. ULTRACET (ULTRACET) [Concomitant]
  5. CLARITIN [Concomitant]
  6. MELOXICAM [Concomitant]
  7. ASCORBIC ACID [Concomitant]
  8. PROVENTIL [Concomitant]
  9. IPRATROPIUM BROMIDE [Concomitant]
  10. CELEXA [Concomitant]
  11. LIPITOR [Concomitant]
  12. ASPIRIN [Concomitant]
  13. POTASSIUM CHLORIDE [Concomitant]
  14. VITAMIN B12 [Concomitant]
  15. HIZENTRA [Suspect]
     Indication: HYPOGAMMAGLOBULINAEMIA
     Dosage: SEE IMAGE
     Route: 058
     Dates: start: 20110913
  16. HIZENTRA [Suspect]
     Indication: HYPOGAMMAGLOBULINAEMIA
     Dosage: SEE IMAGE
     Route: 058
     Dates: start: 20110217
  17. HIZENTRA [Suspect]
     Indication: HYPOGAMMAGLOBULINAEMIA
     Dosage: SEE IMAGE
     Route: 058
     Dates: start: 20110725
  18. HIZENTRA [Suspect]
     Indication: HYPOGAMMAGLOBULINAEMIA
     Dosage: SEE IMAGE
     Route: 058
     Dates: start: 20110531
  19. LORCET-HD [Concomitant]
  20. SINGULAIR [Concomitant]
  21. LISINOPRIL [Concomitant]
  22. ANTIVERT [Concomitant]
  23. LEVOTHYROXINE SODIUM [Concomitant]
  24. VESICARE [Concomitant]
  25. HIZENTRA [Suspect]
  26. HIZENTRA [Suspect]
  27. FLONASE [Concomitant]
  28. CALCIUM CARBONATE [Concomitant]
  29. MOTRIN [Concomitant]
  30. HIZENTRA [Suspect]
  31. PREDNISONE TAB [Concomitant]
  32. SPIRIVA [Concomitant]
  33. FUROSEMIDE [Concomitant]
  34. NEXIUM [Concomitant]
  35. FOLIC ACID [Concomitant]
  36. ALBUTEROL [Concomitant]
  37. TRAMADOL HCL [Concomitant]

REACTIONS (4)
  - KIDNEY INFECTION [None]
  - INFUSION SITE RASH [None]
  - PRURITUS GENERALISED [None]
  - LUNG INFECTION [None]
